FAERS Safety Report 19598060 (Version 1)
Quarter: 2021Q3

REPORT INFORMATION
  Report Type: Report from Study
  Country: PL (occurrence: PL)
  Receive Date: 20210722
  Receipt Date: 20210722
  Transmission Date: 20211014
  Serious: Yes (Other)
  Sender: FDA-Public Use
  Company Number: PL-PFIZER INC-2021852204

PATIENT
  Age: 5 Year
  Sex: Male

DRUGS (4)
  1. MYCOPHENOLATE MOFETIL. [Suspect]
     Active Substance: MYCOPHENOLATE MOFETIL
     Indication: PRIMARY IMMUNODEFICIENCY SYNDROME
     Dosage: 400 MG, 1X/DAY
     Route: 065
  2. METHYLPREDNISOLONE. [Suspect]
     Active Substance: METHYLPREDNISOLONE
     Indication: PRIMARY IMMUNODEFICIENCY SYNDROME
     Dosage: 0.1 MG/KG IN TAPERED DOSES
  3. PREDNISONE. [Suspect]
     Active Substance: PREDNISONE
     Indication: PRIMARY IMMUNODEFICIENCY SYNDROME
     Dosage: 2 MG/KG  INITIAL DOSE
     Route: 065
  4. SIROLIMUS. [Suspect]
     Active Substance: SIROLIMUS
     Indication: PRIMARY IMMUNODEFICIENCY SYNDROME
     Dosage: 1.6?1.4 MG/KG

REACTIONS (3)
  - Leukopenia [Recovered/Resolved]
  - Thrombocytopenia [Unknown]
  - Hypertransaminasaemia [Unknown]
